FAERS Safety Report 22150215 (Version 1)
Quarter: 2023Q1

REPORT INFORMATION
  Report Type: Other
  Country: US (occurrence: US)
  Receive Date: 20230329
  Receipt Date: 20230329
  Transmission Date: 20230418
  Serious: Yes (Hospitalization, Other)
  Sender: FDA-Public Use
  Company Number: US-DEXPHARM-20230746

PATIENT
  Age: 4 Year
  Sex: Male

DRUGS (7)
  1. DEXAMETHASONE [Interacting]
     Active Substance: DEXAMETHASONE
     Indication: Chemotherapy
  2. VINCRISTINE [Interacting]
     Active Substance: VINCRISTINE
     Indication: Chemotherapy
  3. PEGASPARGASE [Interacting]
     Active Substance: PEGASPARGASE
     Indication: Chemotherapy
  4. CYTARABINE [Suspect]
     Active Substance: CYTARABINE
     Indication: Chemotherapy
     Route: 050
  5. METHOTREXATE [Suspect]
     Active Substance: METHOTREXATE
     Indication: Chemotherapy
  6. VANCOMYCIN [Suspect]
     Active Substance: VANCOMYCIN
     Dosage: IV DOSE OF VANCOMYCIN
     Route: 050
  7. ECULIZUMAB [Suspect]
     Active Substance: ECULIZUMAB
     Dosage: ECULIZUMAB WAS ADMINISTERED FOLLOWING MENINGOCOCCAL VACCINATION THE PATIENT RECEIVED BI-WEEKLY DO...

REACTIONS (3)
  - Atypical haemolytic uraemic syndrome [Recovered/Resolved]
  - Pancreatitis [Recovered/Resolved]
  - Drug interaction [Recovered/Resolved]
